FAERS Safety Report 19362035 (Version 4)
Quarter: 2022Q4

REPORT INFORMATION
  Report Type: Spontaneous
  Country: US (occurrence: US)
  Receive Date: 20210603
  Receipt Date: 20221025
  Transmission Date: 20230112
  Serious: No
  Sender: FDA-Public Use
  Company Number: NVSC2021US122428

PATIENT
  Sex: Female

DRUGS (2)
  1. MEKINIST [Suspect]
     Active Substance: TRAMETINIB DIMETHYL SULFOXIDE
     Indication: Product used for unknown indication
     Dosage: 0.5 MG (4 TABLET DAILY)
     Route: 065
  2. MEKINIST [Suspect]
     Active Substance: TRAMETINIB DIMETHYL SULFOXIDE
     Dosage: 2 MG, QD (DAILY)
     Route: 048
     Dates: start: 20210406

REACTIONS (8)
  - Joint swelling [Unknown]
  - Acne [Unknown]
  - Peripheral swelling [Unknown]
  - Feeling abnormal [Unknown]
  - Incorrect dose administered [Unknown]
  - Product use in unapproved indication [Unknown]
  - Abdominal pain [Unknown]
  - Fatigue [Unknown]
